FAERS Safety Report 4928511-0 (Version None)
Quarter: 2006Q1

REPORT INFORMATION
  Report Type: 
  Country: None (occurrence: None)
  Receive Date: 20060127
  Receipt Date: 20051030
  Transmission Date: 20060701
  Serious: Yes (Other)
  Sender: FDA-Public Use
  Company Number: 2005150735

PATIENT
  Age: 52 Year
  Sex: Female
  Weight: 58.9676 kg

DRUGS (3)
  1. LYRICA [Suspect]
     Indication: FIBROMYALGIA
     Dosage: 100 MG (50 MG, 2 IN 1 D),ORAL
     Route: 048
     Dates: start: 20051029
  2. NEXIUM [Concomitant]
  3. CELEBREX [Concomitant]

REACTIONS (4)
  - BALANCE DISORDER [None]
  - FEELING DRUNK [None]
  - GAIT DISTURBANCE [None]
  - SOMNOLENCE [None]
